FAERS Safety Report 6694082-4 (Version None)
Quarter: 2010Q2

REPORT INFORMATION
  Report Type: 
  Country: None (occurrence: None)
  Receive Date: 20100423
  Receipt Date: 20100416
  Transmission Date: 20101027
  Serious: Yes (Other)
  Sender: FDA-Public Use
  Company Number: BR-ASTRAZENECA-2010SE17158

PATIENT
  Age: 68 Year
  Sex: Female
  Weight: 60 kg

DRUGS (8)
  1. SEROQUEL [Suspect]
     Indication: BIPOLAR DISORDER
     Route: 048
     Dates: start: 20080401
  2. SEROQUEL [Suspect]
     Route: 048
  3. PURAN T4 [Concomitant]
     Indication: HYPOTHYROIDISM
     Route: 048
     Dates: start: 20081001
  4. CLONAZEPAM [Concomitant]
     Indication: INSOMNIA
     Route: 048
     Dates: start: 20050101
  5. DORMONID [Concomitant]
     Indication: INSOMNIA
     Dosage: ONE AND HALF TABLET DAILY
     Route: 048
     Dates: start: 20050101
  6. LORAX [Concomitant]
     Indication: INSOMNIA
     Dosage: OD
     Route: 048
     Dates: start: 20050101
  7. LIORAN [Concomitant]
     Indication: INSOMNIA
     Dosage: OD
     Route: 048
     Dates: start: 20050101
  8. CARBOLITHIUM [Concomitant]
     Indication: AFFECTIVE DISORDER
     Dosage: OD
     Route: 048
     Dates: start: 19900101

REACTIONS (3)
  - DISCOMFORT [None]
  - RESTLESSNESS [None]
  - THYROID CANCER [None]
